FAERS Safety Report 20491063 (Version 1)
Quarter: 2022Q1

REPORT INFORMATION
  Report Type: Spontaneous
  Country: US (occurrence: None)
  Receive Date: 20220218
  Receipt Date: 20220218
  Transmission Date: 20220423
  Serious: Yes (Hospitalization)
  Sender: FDA-Public Use
  Company Number: None

PATIENT
  Age: 41 Year
  Sex: Female

DRUGS (4)
  1. DEXTROAMPHET SACCHARAT, AMPHET ASPARTATE, DEXTROAMPHET SULFATE AND AMP [Suspect]
     Active Substance: AMPHETAMINE ASPARTATE\AMPHETAMINE SULFATE\DEXTROAMPHETAMINE SACCHARATE\DEXTROAMPHETAMINE SULFATE
     Indication: Attention deficit hyperactivity disorder
     Dosage: FREQUENCY : DAILY;?
     Route: 048
     Dates: start: 20140101
  2. TRAMADOL [Concomitant]
     Active Substance: TRAMADOL
  3. MELOXICAM [Concomitant]
     Active Substance: MELOXICAM
  4. MIDODRINE [Concomitant]
     Active Substance: MIDODRINE

REACTIONS (2)
  - Mental disorder [None]
  - Adverse drug reaction [None]

NARRATIVE: CASE EVENT DATE: 20211214
